FAERS Safety Report 7769858-2 (Version None)
Quarter: 2011Q3

REPORT INFORMATION
  Report Type: 
  Country: None (occurrence: None)
  Receive Date: 20110922
  Receipt Date: 20100806
  Transmission Date: 20111222
  Serious: No
  Sender: FDA-Public Use
  Company Number: US-ASTRAZENECA-2010SE36933

PATIENT
  Age: 31 Year
  Sex: Female

DRUGS (7)
  1. SEROQUEL [Suspect]
     Indication: BIPOLAR DISORDER
     Route: 048
     Dates: start: 20080101, end: 20100201
  2. XANAX [Concomitant]
  3. LITHIUM CARBONATE [Concomitant]
  4. CITALOPRAM HYDROBROMIDE [Concomitant]
  5. SEROQUEL [Suspect]
     Route: 048
     Dates: start: 20100201, end: 20100201
  6. SEROQUEL [Suspect]
     Route: 048
     Dates: start: 20100201, end: 20100701
  7. CLONAZEPAM [Concomitant]

REACTIONS (5)
  - PANIC ATTACK [None]
  - FEELING ABNORMAL [None]
  - INSOMNIA [None]
  - ANGER [None]
  - DRUG DOSE OMISSION [None]
